FAERS Safety Report 10050151 (Version 1)
Quarter: 2014Q1

REPORT INFORMATION
  Report Type: Spontaneous
  Country: US (occurrence: None)
  Receive Date: 20140331
  Receipt Date: 20140331
  Transmission Date: 20141002
  Serious: Yes (Disabling)
  Sender: FDA-Public Use
  Company Number: None

PATIENT
  Age: 70 Year
  Sex: Male
  Weight: 104.33 kg

DRUGS (1)
  1. TAMSULOSIN [Suspect]
     Dosage: 0.8 ONCE DAILY TAKEN BY MOUTH
     Route: 048

REACTIONS (4)
  - Asthenia [None]
  - Dizziness [None]
  - Myalgia [None]
  - Therapy change [None]
